FAERS Safety Report 5263928-9 (Version None)
Quarter: 2007Q1

REPORT INFORMATION
  Report Type: 
  Country: None (occurrence: None)
  Receive Date: 20070313
  Receipt Date: 20070307
  Transmission Date: 20070707
  Serious: Yes (Hospitalization)
  Sender: FDA-Public Use
  Company Number: IT-BRISTOL-MYERS SQUIBB COMPANY-13693825

PATIENT
  Age: 66 Year
  Sex: Female

DRUGS (8)
  1. ETOPOSIDE [Suspect]
     Indication: NON-HODGKIN'S LYMPHOMA
  2. CYCLOPHOSPHAMIDE [Suspect]
     Indication: NON-HODGKIN'S LYMPHOMA
     Route: 042
  3. METHOTREXATE [Suspect]
     Indication: NON-HODGKIN'S LYMPHOMA
  4. BLEOMYCIN [Suspect]
     Indication: NON-HODGKIN'S LYMPHOMA
  5. VINCRISTINE [Suspect]
     Indication: NON-HODGKIN'S LYMPHOMA
  6. EPIRUBICIN [Suspect]
     Indication: NON-HODGKIN'S LYMPHOMA
  7. CYTARABINE [Suspect]
     Indication: NON-HODGKIN'S LYMPHOMA
  8. PREDNISONE [Suspect]
     Indication: NON-HODGKIN'S LYMPHOMA

REACTIONS (1)
  - RETROPERITONEAL FIBROSIS [None]
